FAERS Safety Report 7451994-1 (Version None)
Quarter: 2011Q2

REPORT INFORMATION
  Report Type: 
  Country: None (occurrence: None)
  Receive Date: 20110425
  Receipt Date: 20110415
  Transmission Date: 20111010
  Serious: Yes (Life-Threatening, Hospitalization)
  Sender: FDA-Public Use
  Company Number: 2011MA004331

PATIENT
  Age: 77 Year
  Sex: Male

DRUGS (4)
  1. MIRTAZAPINE [Suspect]
     Indication: DEPRESSION
     Dosage: 15 MG; PO
     Route: 048
     Dates: start: 20100101, end: 20110108
  2. MIRTAZAPINE [Suspect]
     Indication: DEPRESSION
     Dosage: 15 MG; PO
     Route: 048
     Dates: start: 20100101, end: 20110108
  3. MIRTAZAPINE [Suspect]
     Indication: DEPRESSION
     Dosage: 15 MG;PO
     Route: 048
     Dates: start: 20100101, end: 20110108
  4. MIRTAZAPINE [Suspect]
     Indication: DEPRESSION
     Dosage: 15 MG; PO
     Route: 048
     Dates: start: 20100101, end: 20110108

REACTIONS (3)
  - FACIAL BONES FRACTURE [None]
  - FALL [None]
  - DELIRIUM [None]
